APPROVED DRUG PRODUCT: DAPSONE
Active Ingredient: DAPSONE
Strength: 100MG
Dosage Form/Route: TABLET;ORAL
Application: A086842 | Product #001 | TE Code: AB
Applicant: EVEREST LIFE SCIENCES LLC
Approved: Approved Prior to Jan 1, 1982 | RLD: Yes | RS: No | Type: RX